FAERS Safety Report 9879344 (Version 2)
Quarter: 2014Q1

REPORT INFORMATION
  Report Type: Report from Study
  Country: AU (occurrence: AU)
  Receive Date: 20140206
  Receipt Date: 20140217
  Transmission Date: 20141002
  Serious: Yes (Life-Threatening, Hospitalization, Disabling, Other)
  Sender: FDA-Public Use
  Company Number: PHHY2014AU014716

PATIENT
  Age: 89 Year
  Sex: Female
  Weight: 45 kg

DRUGS (4)
  1. ACLASTA [Suspect]
     Indication: OSTEOPOROSIS
     Dosage: 5 MG, UNK
     Route: 042
     Dates: start: 20120220
  2. ACLASTA [Suspect]
     Dosage: 5 MG, UNK
     Route: 042
     Dates: start: 20130212
  3. VIT D [Concomitant]
     Dosage: 1 DF, QD
     Route: 048
  4. OXYTROL [Concomitant]
     Dosage: 2 DF, WEEKLY

REACTIONS (9)
  - Hip fracture [Recovered/Resolved with Sequelae]
  - Fall [Unknown]
  - Femoral neck fracture [Unknown]
  - Gastrointestinal haemorrhage [Unknown]
  - Melaena [Unknown]
  - Delirium [Unknown]
  - Weight bearing difficulty [Unknown]
  - Memory impairment [Unknown]
  - General physical health deterioration [Unknown]
